FAERS Safety Report 16420443 (Version 1)
Quarter: 2019Q2

REPORT INFORMATION
  Report Type: Spontaneous
  Country: GR (occurrence: GR)
  Receive Date: 20190612
  Receipt Date: 20190612
  Transmission Date: 20190711
  Serious: Yes (Other)
  Sender: FDA-Public Use
  Company Number: GR-PFIZER INC-2019244390

PATIENT
  Age: 74 Year
  Sex: Female

DRUGS (1)
  1. NEURONTIN [Suspect]
     Active Substance: GABAPENTIN
     Dosage: 300 MG, 2X/DAY (1 IN THE MORNING AND 1 IN THE NIGHT)

REACTIONS (4)
  - Hypoaesthesia [Unknown]
  - Choking [Unknown]
  - Lethargy [Unknown]
  - Palatal swelling [Unknown]
